FAERS Safety Report 6437866-X (Version None)
Quarter: 2009Q4

REPORT INFORMATION
  Report Type: 
  Country: None (occurrence: None)
  Receive Date: 20091112
  Receipt Date: 20091028
  Transmission Date: 20100525
  Serious: Yes (Hospitalization)
  Sender: FDA-Public Use
  Company Number: FR-ROCHE-665961

PATIENT
  Sex: Male
  Weight: 58 kg

DRUGS (10)
  1. MYCOPHENOLATE MOFETIL [Suspect]
     Indication: LIVER TRANSPLANT
     Route: 048
     Dates: start: 20090501
  2. TACROLIMUS [Suspect]
     Indication: LIVER TRANSPLANT
     Route: 065
     Dates: start: 20090501
  3. CORTANCYL [Suspect]
     Indication: DRUG USE FOR UNKNOWN INDICATION
     Route: 048
     Dates: start: 20090501
  4. NEXIUM [Concomitant]
     Dates: start: 20090501
  5. SECTRAL [Concomitant]
     Dates: start: 20090501
  6. XATRAL [Concomitant]
     Dates: start: 20090601
  7. XANAX [Concomitant]
     Dosage: DOSE 0.25
     Dates: start: 20090502
  8. CONTRAMAL [Concomitant]
     Dates: start: 20090506
  9. ROVALCYTE [Concomitant]
     Dates: start: 20090501
  10. QUESTRAN [Concomitant]
     Dates: start: 20090628

REACTIONS (3)
  - LIVER FUNCTION TEST ABNORMAL [None]
  - MEDICAL DEVICE CHANGE [None]
  - TYPE 1 DIABETES MELLITUS [None]
